FAERS Safety Report 10167953 (Version 1)
Quarter: 2014Q2

REPORT INFORMATION
  Report Type: Spontaneous
  Country: US (occurrence: US)
  Receive Date: 20140512
  Receipt Date: 20140512
  Transmission Date: 20141212
  Serious: Yes (Hospitalization)
  Sender: FDA-Public Use
  Company Number: US-GLAXOSMITHKLINE-A1072675A

PATIENT
  Age: 43 Year
  Sex: Female

DRUGS (1)
  1. MEPRON [Suspect]
     Indication: INFECTION PROPHYLAXIS
     Route: 065
     Dates: start: 20140410

REACTIONS (1)
  - Investigation [Not Recovered/Not Resolved]
